FAERS Safety Report 9528099 (Version 6)
Quarter: 2014Q2

REPORT INFORMATION
  Report Type: Spontaneous
  Country: GB (occurrence: GB)
  Receive Date: 20130917
  Receipt Date: 20140625
  Transmission Date: 20141212
  Serious: Yes (Other)
  Sender: FDA-Public Use
  Company Number: GB-TEVA-431597ISR

PATIENT
  Age: 36 Year
  Sex: Male

DRUGS (2)
  1. CITALOPRAM [Suspect]
     Dosage: 40MG, UNK
     Route: 048
     Dates: end: 20130806
  2. CLOZARIL [Suspect]
     Indication: SCHIZOPHRENIA
     Route: 048
     Dates: start: 20040611, end: 20060806

REACTIONS (5)
  - Mental impairment [Unknown]
  - Electrocardiogram QT prolonged [Recovered/Resolved]
  - Anxiety [Not Recovered/Not Resolved]
  - Chest pain [Unknown]
  - Tachycardia [Recovered/Resolved]
